FAERS Safety Report 4462895-5 (Version None)
Quarter: 2004Q3

REPORT INFORMATION
  Report Type: 
  Country: None (occurrence: None)
  Receive Date: 20040927
  Receipt Date: 20040920
  Transmission Date: 20050211
  Serious: Yes (Life-Threatening, Hospitalization)
  Sender: FDA-Public Use
  Company Number: SEWYE053821SEP04

PATIENT
  Sex: Female

DRUGS (2)
  1. EFFEXOR [Suspect]
     Indication: PANIC DISORDER
     Dosage: 37.5 MG 1X PER 1 DAY
     Route: 048
  2. SYMBICORT (BUDESONIDE/FORMOTEROL FUMARATE) [Concomitant]

REACTIONS (10)
  - APGAR SCORE LOW [None]
  - BASE EXCESS NEGATIVE [None]
  - BLOOD GLUCOSE DECREASED [None]
  - DRUG EXPOSURE DURING PREGNANCY [None]
  - DYSPNOEA [None]
  - FEEDING PROBLEM IN NEWBORN [None]
  - HYPOTONIA NEONATAL [None]
  - MUSCLE TWITCHING [None]
  - NEONATAL DISORDER [None]
  - PH BODY FLUID ABNORMAL [None]
